FAERS Safety Report 9487205 (Version 1)
Quarter: 2013Q3

REPORT INFORMATION
  Report Type: Spontaneous
  Country: GB (occurrence: GB)
  Receive Date: 20130829
  Receipt Date: 20130829
  Transmission Date: 20140515
  Serious: Yes (Other)
  Sender: FDA-Public Use
  Company Number: GB-ACTAVIS-2013-15258

PATIENT
  Sex: 0

DRUGS (2)
  1. CETIRIZINE (UNKNOWN) [Suspect]
     Indication: ARTHROPOD BITE
     Dosage: 10 MG, DOSAGE(S)=1 INTERVAL= 1 DAY(S)
     Route: 048
  2. VENLAFAXINE HYDROCHLORIDE (UNKNOWN) [Suspect]
     Indication: DEPRESSION
     Dosage: 75 MG, DOSAGE(S)=1 INTERVAL= 1 DAY(S)
     Route: 048

REACTIONS (4)
  - Confusional state [Recovered/Resolved]
  - Aggression [Recovered/Resolved]
  - Disturbance in attention [Recovered/Resolved]
  - Drug interaction [Recovered/Resolved]
